FAERS Safety Report 9045892 (Version 2)
Quarter: 2013Q2

REPORT INFORMATION
  Report Type: Report from Study
  Country: US (occurrence: US)
  Receive Date: 20130201
  Receipt Date: 20130516
  Transmission Date: 20140414
  Serious: Yes (Hospitalization, Other)
  Sender: FDA-Public Use
  Company Number: US-ABBOTT-12P-163-1022062-00

PATIENT
  Sex: Female
  Weight: 96.25 kg

DRUGS (12)
  1. HUMIRA [Suspect]
     Indication: COLITIS ULCERATIVE
     Dates: start: 2009, end: 2009
  2. HUMIRA [Suspect]
     Indication: COLITIS ULCERATIVE
     Dates: start: 200902, end: 200910
  3. HUMIRA [Suspect]
     Dosage: TWO 20 MILLIGRAM SYRINGES
     Dates: start: 201211, end: 201212
  4. HUMIRA [Suspect]
     Dates: start: 201212
  5. HUMIRA [Suspect]
     Route: 058
     Dates: start: 200910, end: 201110
  6. CREON [Suspect]
     Indication: PANCREATIC INSUFFICIENCY
     Dosage: 2 W/MEAL, 1 W/SNACK
     Dates: start: 200905
  7. NACL [Suspect]
     Indication: NAUSEA
     Route: 042
     Dates: start: 201304, end: 201304
  8. NACL [Suspect]
     Indication: VOMITING
  9. ASACOL [Concomitant]
     Indication: COLITIS ULCERATIVE
  10. OXYCODONE [Concomitant]
     Indication: PRODUCT USED FOR UNKNOWN INDICATION
  11. OXYCONTIN [Concomitant]
     Indication: PRODUCT USED FOR UNKNOWN INDICATION
  12. KLONOPIN [Concomitant]
     Indication: ANXIETY

REACTIONS (25)
  - Weight decreased [Recovered/Resolved]
  - Dry eye [Recovered/Resolved]
  - Chapped lips [Not Recovered/Not Resolved]
  - Dry eye [Not Recovered/Not Resolved]
  - Dyspepsia [Not Recovered/Not Resolved]
  - Generalised erythema [Not Recovered/Not Resolved]
  - Erythema [Not Recovered/Not Resolved]
  - Pain [Recovered/Resolved]
  - Rash vesicular [Recovered/Resolved]
  - Colitis ulcerative [Recovered/Resolved]
  - Nausea [Recovered/Resolved]
  - Abdominal pain [Recovered/Resolved]
  - Diarrhoea [Recovered/Resolved]
  - Rectal haemorrhage [Recovered/Resolved]
  - Pancreatic insufficiency [Not Recovered/Not Resolved]
  - Appendicitis [Recovered/Resolved]
  - Bloody discharge [Not Recovered/Not Resolved]
  - Abdominal pain upper [Recovered/Resolved]
  - Headache [Recovered/Resolved]
  - Vomiting [Recovered/Resolved]
  - Ear infection [Recovered/Resolved]
  - Oedema peripheral [Recovering/Resolving]
  - Pain in extremity [Recovering/Resolving]
  - Skin fissures [Not Recovered/Not Resolved]
  - Recurring skin boils [Not Recovered/Not Resolved]
